FAERS Safety Report 7688565-8 (Version None)
Quarter: 2011Q3

REPORT INFORMATION
  Report Type: 
  Country: None (occurrence: None)
  Receive Date: 20110817
  Receipt Date: 20110817
  Transmission Date: 20111222
  Serious: No
  Sender: FDA-Public Use
  Company Number: None

PATIENT
  Age: 53 Year
  Sex: Female
  Weight: 90.718 kg

DRUGS (4)
  1. OXYCONTIN [Suspect]
     Indication: SPINAL OPERATION
     Dosage: 6 TABLETS
     Route: 048
     Dates: start: 20100915, end: 20110816
  2. OXYCONTIN [Suspect]
     Indication: RHEUMATOID ARTHRITIS
     Dosage: 6 TABLETS
     Route: 048
     Dates: start: 20100915, end: 20110816
  3. OXYCONTIN [Suspect]
     Indication: FIBROMYALGIA
     Dosage: 6 TABLETS
     Route: 048
     Dates: start: 20100915, end: 20110816
  4. METHADONE HYDROCHLORIDE [Concomitant]
     Route: 048

REACTIONS (13)
  - RENAL FAILURE [None]
  - HYPERHIDROSIS [None]
  - DECREASED APPETITE [None]
  - DRUG INEFFECTIVE [None]
  - BLOOD PRESSURE INCREASED [None]
  - PRODUCT FORMULATION ISSUE [None]
  - VOMITING [None]
  - SUICIDAL IDEATION [None]
  - WITHDRAWAL SYNDROME [None]
  - ABNORMAL FAECES [None]
  - QUALITY OF LIFE DECREASED [None]
  - FAECES DISCOLOURED [None]
  - NAUSEA [None]
